FAERS Safety Report 8439176-8 (Version None)
Quarter: 2012Q2

REPORT INFORMATION
  Report Type: 
  Country: None (occurrence: None)
  Receive Date: 20120615
  Receipt Date: 20120604
  Transmission Date: 20120825
  Serious: Yes (Hospitalization, Other)
  Sender: FDA-Public Use
  Company Number: PHHY2012AU045774

PATIENT
  Sex: Male
  Weight: 108 kg

DRUGS (1)
  1. CLOZARIL [Suspect]
     Indication: SCHIZOPHRENIA, PARANOID TYPE

REACTIONS (10)
  - ATRIAL SEPTAL DEFECT [None]
  - CARDIAC DISORDER [None]
  - DILATATION VENTRICULAR [None]
  - CARDIAC ANEURYSM [None]
  - ELECTROCARDIOGRAM ABNORMAL [None]
  - EJECTION FRACTION DECREASED [None]
  - MYOCARDIAL ISCHAEMIA [None]
  - HYPOTENSION [None]
  - SYSTOLIC DYSFUNCTION [None]
  - LEFT ATRIAL DILATATION [None]
